FAERS Safety Report 9555790 (Version 6)
Quarter: 2013Q4

REPORT INFORMATION
  Report Type: Spontaneous
  Country: US (occurrence: US)
  Receive Date: 20130926
  Receipt Date: 20131119
  Transmission Date: 20140711
  Serious: Yes (Life-Threatening, Hospitalization, Other)
  Sender: FDA-Public Use
  Company Number: US-JNJFOC-20130911605

PATIENT
  Age: 18 Year
  Sex: Female
  Weight: 62.14 kg

DRUGS (5)
  1. REMICADE [Suspect]
     Indication: CROHN^S DISEASE
     Route: 042
     Dates: start: 20121229, end: 20130803
  2. IMURAN [Suspect]
     Indication: PRODUCT USED FOR UNKNOWN INDICATION
     Route: 065
     Dates: start: 201212, end: 201309
  3. VITAMIN D [Concomitant]
     Route: 065
  4. JOLIVETTE [Concomitant]
     Route: 065
  5. LINZESS [Concomitant]
     Route: 065

REACTIONS (1)
  - Hodgkin^s disease [Unknown]
